FAERS Safety Report 5810895-2 (Version None)
Quarter: 2008Q3

REPORT INFORMATION
  Report Type: 
  Country: None (occurrence: None)
  Receive Date: 20080716
  Receipt Date: 20080703
  Transmission Date: 20090109
  Serious: Yes (Hospitalization)
  Sender: FDA-Public Use
  Company Number: PHHO2005US09305

PATIENT
  Sex: Female
  Weight: 68 kg

DRUGS (7)
  1. ZOLEDRONIC ACID [Suspect]
     Indication: METASTASES TO BONE
     Dosage: 4 MG, UNK
     Route: 042
     Dates: start: 20021209, end: 20041210
  2. FEMARA [Suspect]
     Dosage: 2.5 MG, QD
     Route: 048
     Dates: start: 20021209, end: 20050610
  3. IBUPROFEN [Concomitant]
  4. HYDROCHLOROTHIAZIDE [Concomitant]
  5. MULTI-VITAMIN [Concomitant]
  6. PRILOSEC [Concomitant]
  7. CRESTOR [Concomitant]

REACTIONS (9)
  - ANGINA PECTORIS [None]
  - ANGIOGRAM [None]
  - CARDIAC VENTRICULOGRAM LEFT [None]
  - CATHETERISATION CARDIAC [None]
  - CHEST PAIN [None]
  - CORONARY ARTERIAL STENT INSERTION [None]
  - CORONARY ARTERY STENOSIS [None]
  - FATIGUE [None]
  - MYOCARDIAL INFARCTION [None]
